FAERS Safety Report 5374890-2 (Version None)
Quarter: 2007Q2

REPORT INFORMATION
  Report Type: 
  Country: None (occurrence: None)
  Receive Date: 20070627
  Receipt Date: 20070627
  Transmission Date: 20071010
  Serious: Yes (Other)
  Sender: FDA-Public Use
  Company Number: None

PATIENT
  Age: 41 Year
  Sex: Male
  Weight: 68.4 kg

DRUGS (21)
  1. ZOLPIDEM TARTRATE [Suspect]
     Indication: INSOMNIA
     Dosage: 10 MG PO HS PRN
     Route: 048
     Dates: start: 20061019
  2. ZOLPIDEM TARTRATE [Suspect]
     Indication: INSOMNIA
     Dosage: 10 MG PO HS PRN
     Route: 048
     Dates: start: 20061023
  3. LORAZEPAM [Suspect]
     Indication: ANXIETY
     Dosage: 0.5 MG PO HS PRN
     Route: 048
     Dates: start: 20061017
  4. LORAZEPAM [Suspect]
     Indication: ANXIETY
     Dosage: 0.5 MG PO HS PRN
     Route: 048
     Dates: start: 20061023
  5. OXYCODONE HCL [Suspect]
     Indication: PAIN
     Dosage: 5-10 MG Q 4H PRN
     Dates: start: 20061017
  6. OXYCODONE HCL [Suspect]
     Indication: PAIN
     Dosage: 5-10 MG Q 4H PRN
     Dates: start: 20061018
  7. OXYCODONE HCL [Suspect]
     Indication: PAIN
     Dosage: 5-10 MG Q 4H PRN
     Dates: start: 20061023
  8. CYCLOSPORINE [Concomitant]
  9. VALACYCLOVIR [Concomitant]
  10. OMEPRAZOLE [Concomitant]
  11. HALOPERIDOL [Concomitant]
  12. POTASSIUM CHLORIDE [Concomitant]
  13. SUCRALFATE [Concomitant]
  14. BUDESONIDE [Concomitant]
  15. HYDROCORTISONE [Concomitant]
  16. LEVOFLOXACIN [Concomitant]
  17. VORICONAZOLE [Concomitant]
  18. ZOSYN [Concomitant]
  19. ZOLPIDEM TARTRATE [Concomitant]
  20. LORAZEPAM [Concomitant]
  21. OXYCODONE HCL [Concomitant]

REACTIONS (4)
  - CONFUSIONAL STATE [None]
  - FAECAL INCONTINENCE [None]
  - FALL [None]
  - OXYGEN SATURATION DECREASED [None]
